FAERS Safety Report 5505398-9 (Version None)
Quarter: 2007Q4

REPORT INFORMATION
  Report Type: 
  Country: None (occurrence: None)
  Receive Date: 20071102
  Receipt Date: 20071029
  Transmission Date: 20080405
  Serious: Yes (Hospitalization, Other)
  Sender: FDA-Public Use
  Company Number: JP-MERCK-0707USA02705

PATIENT
  Age: 71 Year
  Sex: Male
  Weight: 63 kg

DRUGS (10)
  1. ELAVIL [Suspect]
     Indication: POST HERPETIC NEURALGIA
     Route: 048
     Dates: start: 20060721, end: 20060920
  2. ELAVIL [Suspect]
     Route: 048
     Dates: start: 20060727
  3. ELAVIL [Suspect]
     Route: 048
     Dates: start: 20060802
  4. ELAVIL [Suspect]
     Route: 048
     Dates: start: 20060809, end: 20060920
  5. [COMPOSITION UNSPECIFIED] [Concomitant]
     Route: 048
  6. ASPIRIN [Concomitant]
     Route: 048
  7. DIOVAN [Concomitant]
     Route: 048
  8. DICLOFENAC DR [Concomitant]
     Indication: POST HERPETIC NEURALGIA
     Route: 048
     Dates: start: 20060727
  9. NEUROTROPIN [Concomitant]
     Indication: POST HERPETIC NEURALGIA
     Route: 048
     Dates: start: 20060727
  10. MECOBALAMIN [Concomitant]
     Indication: POST HERPETIC NEURALGIA
     Route: 048
     Dates: start: 20060727

REACTIONS (3)
  - DYSURIA [None]
  - MALAISE [None]
  - RAPID EYE MOVEMENTS SLEEP ABNORMAL [None]
